FAERS Safety Report 12866674 (Version 1)
Quarter: 2016Q4

REPORT INFORMATION
  Report Type: Report from Study
  Country: None (occurrence: US)
  Receive Date: 20161020
  Receipt Date: 20161020
  Transmission Date: 20170207
  Serious: Yes (Other)
  Sender: FDA-Public Use
  Company Number: US-ABBVIE-16K-163-1757288-00

PATIENT
  Sex: Female

DRUGS (1)
  1. HUMIRA [Suspect]
     Active Substance: ADALIMUMAB
     Indication: CROHN^S DISEASE
     Route: 058
     Dates: start: 2014, end: 201608

REACTIONS (5)
  - Arthralgia [Recovering/Resolving]
  - Asthma [Not Recovered/Not Resolved]
  - Bronchitis [Recovered/Resolved]
  - Anaemia [Not Recovered/Not Resolved]
  - Cartilage atrophy [Recovered/Resolved]

NARRATIVE: CASE EVENT DATE: 2015
